FAERS Safety Report 9168469 (Version 3)
Quarter: 2013Q2

REPORT INFORMATION
  Report Type: Spontaneous
  Country: US (occurrence: US)
  Receive Date: 20130318
  Receipt Date: 20130508
  Transmission Date: 20140414
  Serious: No
  Sender: FDA-Public Use
  Company Number: US-PFIZER INC-2013085158

PATIENT
  Age: 82 Year
  Sex: Female
  Weight: 54 kg

DRUGS (5)
  1. ADVIL ALLERGY AND CONGESTION RELIEF [Suspect]
     Indication: RHINORRHOEA
     Dosage: UNK, SINGLE (ONCE)
     Route: 048
     Dates: start: 201303
  2. ADVIL ALLERGY AND CONGESTION RELIEF [Suspect]
     Indication: SNEEZING
  3. ADVIL ALLERGY AND CONGESTION RELIEF [Suspect]
     Indication: SINUS CONGESTION
  4. IBUPROFEN [Suspect]
     Indication: BACK PAIN
     Dosage: UNK
     Dates: start: 2011
  5. LEXAPRO [Concomitant]
     Indication: SEASONAL AFFECTIVE DISORDER
     Dosage: 5 MG, DAILY

REACTIONS (3)
  - Drug ineffective [Unknown]
  - Visual impairment [Unknown]
  - Dizziness [Unknown]
